FAERS Safety Report 11419708 (Version 1)
Quarter: 2015Q3

REPORT INFORMATION
  Report Type: Report from Study
  Country: IN (occurrence: IN)
  Receive Date: 20150826
  Receipt Date: 20150826
  Transmission Date: 20151125
  Serious: Yes (Death, Hospitalization)
  Sender: FDA-Public Use
  Company Number: IN-UNITED THERAPEUTICS LTD.-UTC-010165

PATIENT
  Age: 51 Year
  Sex: Male
  Weight: 66.3 kg

DRUGS (15)
  1. EXINIA [Concomitant]
     Indication: PULMONARY ARTERIAL HYPERTENSION
     Route: 048
     Dates: start: 20110524
  2. COBADEX CZS [Concomitant]
     Indication: VITAMIN SUPPLEMENTATION
     Dosage: 2 TABLETS ONCE A DAY
     Route: 048
     Dates: start: 20110817
  3. DERIPHYLLIN-R [Concomitant]
     Indication: CHRONIC OBSTRUCTIVE PULMONARY DISEASE
     Route: 048
     Dates: start: 20090129
  4. UT-15C SR(SUSTAINED-RELEASE TABLET)(TREPROSTINIL DIETHANOLAMINE) [Suspect]
     Active Substance: TREPROSTINIL
     Indication: PULMONARY ARTERIAL HYPERTENSION
     Route: 048
     Dates: start: 20100621
  5. ALDACTONE [Concomitant]
     Active Substance: SPIRONOLACTONE
     Indication: PULMONARY ARTERIAL HYPERTENSION
     Route: 048
     Dates: start: 20100427
  6. AEROCORT INHALER [Concomitant]
     Indication: CHRONIC OBSTRUCTIVE PULMONARY DISEASE
     Dates: start: 20100604
  7. APRESOL [Concomitant]
     Indication: PULMONARY ARTERIAL HYPERTENSION
     Route: 048
     Dates: start: 20110406
  8. ASPIRIN. [Concomitant]
     Active Substance: ASPIRIN
     Indication: MYOCARDIAL ISCHAEMIA
     Route: 048
     Dates: start: 20100129
  9. LANOXIN [Concomitant]
     Active Substance: DIGOXIN
     Indication: PULMONARY HYPERTENSION
     Route: 048
  10. ZYTANIX [Concomitant]
     Indication: OEDEMA
     Route: 048
     Dates: start: 20100206
  11. WARF [Concomitant]
     Indication: PULMONARY ARTERIAL HYPERTENSION
     Route: 048
     Dates: start: 20090129
  12. UT-15C SR(SUSTAINED-RELEASE TABLET)(TREPROSTINIL DIETHANOLAMINE) [Suspect]
     Active Substance: TREPROSTINIL
     Route: 048
     Dates: start: 20100629, end: 20110913
  13. DYTOR [Concomitant]
     Active Substance: TORSEMIDE
     Indication: OEDEMA
     Route: 048
     Dates: start: 20100920
  14. UT-15C SR(SUSTAINED-RELEASE TABLET)(TREPROSTINIL DIETHANOLAMINE) [Suspect]
     Active Substance: TREPROSTINIL
     Route: 048
     Dates: start: 20110915, end: 20110919
  15. DYTOR [Concomitant]
     Active Substance: TORSEMIDE
     Route: 042
     Dates: start: 20101223

REACTIONS (3)
  - Rectal ulcer [Not Recovered/Not Resolved]
  - Cardiac failure congestive [Not Recovered/Not Resolved]
  - Rectal ulcer haemorrhage [Fatal]

NARRATIVE: CASE EVENT DATE: 20110908
